FAERS Safety Report 14157996 (Version 3)
Quarter: 2018Q1

REPORT INFORMATION
  Report Type: Spontaneous
  Country: US (occurrence: US)
  Receive Date: 20171103
  Receipt Date: 20180123
  Transmission Date: 20180508
  Serious: Yes (Life-Threatening, Hospitalization)
  Sender: FDA-Public Use
  Company Number: US-SA-2017SA212766

PATIENT
  Age: 50 Year
  Sex: Female
  Weight: 54.9 kg

DRUGS (2)
  1. BETASERON [Concomitant]
     Active Substance: INTERFERON BETA-1B
     Route: 065
     Dates: end: 2017
  2. AUBAGIO [Suspect]
     Active Substance: TERIFLUNOMIDE
     Indication: MULTIPLE SCLEROSIS
     Route: 048
     Dates: start: 20170825, end: 20171018

REACTIONS (8)
  - Skin ulcer [Not Recovered/Not Resolved]
  - Nasal ulcer [Recovering/Resolving]
  - Stomatitis [Recovering/Resolving]
  - Nasal congestion [Unknown]
  - Mouth swelling [Not Recovered/Not Resolved]
  - Pharyngeal ulceration [Recovering/Resolving]
  - Angioedema [Not Recovered/Not Resolved]
  - Cheilitis [Recovering/Resolving]

NARRATIVE: CASE EVENT DATE: 2017
